FAERS Safety Report 4699228-5 (Version None)
Quarter: 2005Q2

REPORT INFORMATION
  Report Type: 
  Country: None (occurrence: None)
  Receive Date: 20050622
  Receipt Date: 20050615
  Transmission Date: 20051028
  Serious: Yes (Hospitalization)
  Sender: FDA-Public Use
  Company Number: 2004243092NL

PATIENT
  Age: 48 Year
  Sex: Male
  Weight: 84 kg

DRUGS (3)
  1. XALATAN [Suspect]
     Indication: OPEN ANGLE GLAUCOMA
     Dosage: 1 DROP (1 DROP, QD) OPHTHALMIC
     Route: 047
     Dates: start: 20011109, end: 20011219
  2. SELEKTINE (PRAVASTATIN DODIUM) [Concomitant]
  3. LOSEC (OMEPRAZOLE) [Concomitant]

REACTIONS (4)
  - ANGINA UNSTABLE [None]
  - ATRIOVENTRICULAR BLOCK FIRST DEGREE [None]
  - CARDIAC DISORDER [None]
  - ELECTROCARDIOGRAM T WAVE INVERSION [None]
